FAERS Safety Report 13368356 (Version 1)
Quarter: 2017Q1

REPORT INFORMATION
  Report Type: Spontaneous
  Country: HR (occurrence: HR)
  Receive Date: 20170324
  Receipt Date: 20170324
  Transmission Date: 20170429
  Serious: Yes (Other)
  Sender: FDA-Public Use
  Company Number: PHHY2017HR042271

PATIENT
  Sex: Female

DRUGS (1)
  1. TASIGNA [Suspect]
     Active Substance: NILOTINIB
     Indication: CHRONIC MYELOID LEUKAEMIA
     Dosage: 400 MG, BID
     Route: 065
     Dates: start: 201210, end: 201509

REACTIONS (4)
  - Cortical visual impairment [Unknown]
  - Diabetes mellitus [Unknown]
  - Carotid artery stenosis [Unknown]
  - Cerebral artery stenosis [Unknown]

NARRATIVE: CASE EVENT DATE: 201410
